FAERS Safety Report 24303110 (Version 1)
Quarter: 2024Q3

REPORT INFORMATION
  Report Type: Report from Study
  Country: BR (occurrence: BR)
  Receive Date: 20240910
  Receipt Date: 20240910
  Transmission Date: 20241017
  Serious: Yes (Other)
  Sender: MELINTA THERAPEUTICS
  Company Number: BR-AstraZeneca-2024A199159

PATIENT

DRUGS (9)
  1. METOPROLOL SUCCINATE [Suspect]
     Active Substance: METOPROLOL SUCCINATE
     Indication: Product used for unknown indication
     Dosage: 50 MILLIGRAM (USE 2 25MG TABLETS50.0MG UNKNOWN)
     Route: 048
  2. DAPAGLIFLOZIN [Suspect]
     Active Substance: DAPAGLIFLOZIN
     Indication: Diabetes mellitus
     Dosage: 10 MILLIGRAM, QD  (ONCE)
     Route: 048
     Dates: start: 202307
  3. METFORMIN HYDROCHLORIDE [Concomitant]
     Active Substance: METFORMIN HYDROCHLORIDE
     Dosage: 500 MILLIGRAM
  4. 3-DEHYDRORETINOL, ASCORBIC ACID, CALCIUM, CASEIN SODIUM, CHLORINE, CHR [Concomitant]
     Indication: Product used for unknown indication
     Dosage: UNK
  5. (6S)-5-METHYLTETRAHYDROFOLATE, ASCORBIC ACID, BETACAROTENE, BIOTIN, BO [Concomitant]
     Indication: Product used for unknown indication
     Dosage: UNK
  6. MINERALS\VITAMINS [Concomitant]
     Active Substance: MINERALS\VITAMINS
     Indication: Product used for unknown indication
     Dosage: UNK
  7. VITAMIN C [Concomitant]
     Active Substance: ASCORBIC ACID
     Indication: Product used for unknown indication
     Dosage: UNK
  8. AMLODIPINE BESYLATE [Concomitant]
     Active Substance: AMLODIPINE BESYLATE
     Indication: Product used for unknown indication
     Dosage: UNK
  9. LOSARTAN POTASSIUM [Concomitant]
     Active Substance: LOSARTAN POTASSIUM
     Dosage: UNK

REACTIONS (10)
  - Infarction [Unknown]
  - Blood glucose increased [Recovered/Resolved]
  - Asthenia [Unknown]
  - Hypoglycaemia [Unknown]
  - Diabetes mellitus [Unknown]
  - Hypertension [Unknown]
  - Cardiac disorder [Unknown]
  - Hyperhidrosis [Recovered/Resolved]
  - Hyperhidrosis [Recovered/Resolved]
  - Malaise [Recovered/Resolved]

NARRATIVE: CASE EVENT DATE: 20240805
